FAERS Safety Report 25231994 (Version 1)
Quarter: 2025Q2

REPORT INFORMATION
  Report Type: Spontaneous
  Country: US (occurrence: US)
  Receive Date: 20250423
  Receipt Date: 20250423
  Transmission Date: 20250716
  Serious: No
  Sender: ANI
  Company Number: US-ANIPHARMA-2024-US-051960

PATIENT
  Age: 64 Year
  Sex: Female

DRUGS (2)
  1. PROPRANOLOL HYDROCHLORIDE [Suspect]
     Active Substance: PROPRANOLOL HYDROCHLORIDE
     Indication: Product used for unknown indication
  2. PROVIGIL [Suspect]
     Active Substance: MODAFINIL

REACTIONS (2)
  - Disorientation [Unknown]
  - Drug interaction [Unknown]
